FAERS Safety Report 21877767 (Version 1)
Quarter: 2023Q1

REPORT INFORMATION
  Report Type: Spontaneous
  Country: FR (occurrence: FR)
  Receive Date: 20230118
  Receipt Date: 20230118
  Transmission Date: 20230417
  Serious: Yes (Death)
  Sender: FDA-Public Use
  Company Number: None

PATIENT
  Age: 62 Year
  Sex: Male
  Weight: 65.5 kg

DRUGS (9)
  1. CISATRACURIUM BESYLATE [Suspect]
     Active Substance: CISATRACURIUM BESYLATE
     Indication: General anaesthesia
     Dates: start: 20221201, end: 20221201
  2. KETAMINE [Suspect]
     Active Substance: KETAMINE
     Indication: General anaesthesia
     Dates: start: 20221201, end: 20221201
  3. PROPOFOL [Suspect]
     Active Substance: PROPOFOL
     Indication: General anaesthesia
     Dates: start: 20221201, end: 20221201
  4. REMIFENTANIL HYDROCHLORIDE [Suspect]
     Active Substance: REMIFENTANIL HYDROCHLORIDE
     Indication: General anaesthesia
     Dates: start: 20221201, end: 20221201
  5. MANNITOL [Suspect]
     Active Substance: MANNITOL
     Indication: General anaesthesia
     Dates: start: 20221201, end: 20221201
  6. CEFAZOLIN [Suspect]
     Active Substance: CEFAZOLIN
     Indication: Antibiotic prophylaxis
     Dates: start: 20221201, end: 20221201
  7. XYLOCAINE [Suspect]
     Active Substance: LIDOCAINE HYDROCHLORIDE
     Indication: Local anaesthesia
     Dates: start: 20221201, end: 20221201
  8. SEVOFLURANE [Suspect]
     Active Substance: SEVOFLURANE
     Indication: General anaesthesia
     Dates: start: 20221201, end: 20221201
  9. POVIDONE [Suspect]
     Active Substance: POVIDONE
     Indication: Infection prophylaxis
     Dates: start: 20221201, end: 20221201

REACTIONS (2)
  - Anaphylactic shock [Fatal]
  - Cardiovascular insufficiency [Fatal]

NARRATIVE: CASE EVENT DATE: 20221201
